FAERS Safety Report 20619813 (Version 1)
Quarter: 2022Q1

REPORT INFORMATION
  Report Type: Spontaneous
  Country: CH (occurrence: CH)
  Receive Date: 20220322
  Receipt Date: 20220322
  Transmission Date: 20220423
  Serious: Yes (Death, Life-Threatening, Hospitalization, Other)
  Sender: FDA-Public Use
  Company Number: CH-CELLTRION INC.-2022CH003274

PATIENT

DRUGS (2)
  1. RITUXIMAB [Suspect]
     Active Substance: RITUXIMAB
     Indication: Rheumatoid arthritis
     Dosage: BIANNUALLY
  2. RITUXIMAB [Suspect]
     Active Substance: RITUXIMAB
     Indication: Interstitial lung disease

REACTIONS (9)
  - Respiratory failure [Fatal]
  - Pneumonia bacterial [Fatal]
  - COVID-19 [Fatal]
  - Diffuse alveolar damage [Fatal]
  - Productive cough [Unknown]
  - Dyspnoea [Unknown]
  - Pyrexia [Unknown]
  - Inflammatory marker increased [Unknown]
  - Off label use [Unknown]
